FAERS Safety Report 25861251 (Version 1)
Quarter: 2025Q3

REPORT INFORMATION
  Report Type: Spontaneous
  Country: US (occurrence: US)
  Receive Date: 20250929
  Receipt Date: 20250929
  Transmission Date: 20251021
  Serious: No
  Sender: MERCK SHARP & DOHME LLC
  Company Number: US-009507513-2326729

PATIENT
  Sex: Female

DRUGS (3)
  1. VERICIGUAT [Suspect]
     Active Substance: VERICIGUAT
     Dates: end: 20250826
  2. VERICIGUAT [Suspect]
     Active Substance: VERICIGUAT
     Dates: start: 20250826, end: 2025
  3. VERICIGUAT [Suspect]
     Active Substance: VERICIGUAT
     Dates: start: 2025

REACTIONS (1)
  - Pruritus [Recovered/Resolved]

NARRATIVE: CASE EVENT DATE: 20250826
